FAERS Safety Report 21258865 (Version 1)
Quarter: 2022Q3

REPORT INFORMATION
  Report Type: Report from Study
  Country: EG (occurrence: EG)
  Receive Date: 20220826
  Receipt Date: 20220826
  Transmission Date: 20221027
  Serious: Yes (Other)
  Sender: FDA-Public Use
  Company Number: EG-NOVARTISPH-NVSC2022EG190081

PATIENT
  Age: 39 Year
  Sex: Female

DRUGS (9)
  1. COSENTYX [Suspect]
     Active Substance: SECUKINUMAB
     Indication: Ankylosing spondylitis
     Dosage: 150 MG, QMO
     Route: 065
     Dates: start: 2018, end: 20220504
  2. COSENTYX [Suspect]
     Active Substance: SECUKINUMAB
     Dosage: 150 MG, QMO
     Route: 065
     Dates: start: 20220804
  3. METHOTREXATE [Concomitant]
     Active Substance: METHOTREXATE
     Indication: Ankylosing spondylitis
     Dosage: UNK
     Route: 065
  4. METHOTREXATE [Concomitant]
     Active Substance: METHOTREXATE
     Dosage: UNK, QW (6CM PER WEEK) (AFTER STOPPING FOR A YEAR)
     Route: 065
     Dates: start: 20220818
  5. DANTRELAX [Concomitant]
     Indication: Muscle disorder
     Dosage: 1 DOSAGE FORM, QD
     Route: 048
  6. LYRICA [Concomitant]
     Active Substance: PREGABALIN
     Indication: Tendonitis
     Dosage: 1 DOSAGE FORM, BID (STARTED 2 WEEKS AGO)
     Route: 048
  7. LYRICA [Concomitant]
     Active Substance: PREGABALIN
     Indication: Myopathy
  8. FELDENE [Concomitant]
     Active Substance: PIROXICAM
     Indication: Analgesic therapy
     Dosage: UNK, QD
     Route: 048
     Dates: start: 202207
  9. DIMRA [Concomitant]
     Indication: Analgesic therapy
     Dosage: UNK (ONE OR TWO TIMES PER DAY)
     Route: 048

REACTIONS (4)
  - Hypokinesia [Recovered/Resolved]
  - Red blood cell sedimentation rate increased [Not Recovered/Not Resolved]
  - C-reactive protein increased [Not Recovered/Not Resolved]
  - Musculoskeletal stiffness [Recovered/Resolved]

NARRATIVE: CASE EVENT DATE: 20220601
